FAERS Safety Report 8615917-1 (Version None)
Quarter: 2012Q3

REPORT INFORMATION
  Report Type: 
  Country: None (occurrence: None)
  Receive Date: 20120823
  Receipt Date: 20120813
  Transmission Date: 20120928
  Serious: Yes (Other)
  Sender: FDA-Public Use
  Company Number: US-GLAXOSMITHKLINE-A0989383A

PATIENT
  Age: 64 Year
  Sex: Male

DRUGS (11)
  1. OXYBUTYNIN [Concomitant]
  2. BUPROPION HYDROCHLORIDE [Concomitant]
  3. IMITREX [Suspect]
     Indication: MIGRAINE
     Route: 058
  4. SYNTHROID [Concomitant]
  5. PERCOCET [Concomitant]
  6. CELEBREX [Concomitant]
  7. SUMATRIPTAN [Suspect]
     Indication: CLUSTER HEADACHE
     Dosage: 6MG PER DAY
     Route: 058
     Dates: start: 19950701, end: 20120720
  8. XANAX [Concomitant]
  9. SIMVASTATIN [Concomitant]
  10. TERAZOSIN HYDROCHLORIDE [Concomitant]
  11. ANDRODERM [Concomitant]
     Route: 062

REACTIONS (6)
  - CORONARY ARTERY DISEASE [None]
  - CHEST DISCOMFORT [None]
  - TRICUSPID VALVE INCOMPETENCE [None]
  - MUSCLE TIGHTNESS [None]
  - MITRAL VALVE INCOMPETENCE [None]
  - FLUSHING [None]
